FAERS Safety Report 17087501 (Version 9)
Quarter: 2022Q1

REPORT INFORMATION
  Report Type: Spontaneous
  Country: GB (occurrence: GB)
  Receive Date: 20191128
  Receipt Date: 20220217
  Transmission Date: 20220423
  Serious: Yes (Other)
  Sender: FDA-Public Use
  Company Number: GB-EMA-DD-20191031-SAHU_K-125923

PATIENT
  Sex: Male

DRUGS (12)
  1. RANITIDINE HYDROCHLORIDE [Suspect]
     Active Substance: RANITIDINE HYDROCHLORIDE
     Indication: Barrett^s oesophagus
     Dosage: UNK
     Route: 065
  2. RANITIDINE HYDROCHLORIDE [Suspect]
     Active Substance: RANITIDINE HYDROCHLORIDE
     Indication: Oesophagitis
     Dosage: UNK
     Route: 065
  3. RANITIDINE HYDROCHLORIDE [Suspect]
     Active Substance: RANITIDINE HYDROCHLORIDE
     Indication: Oesophagitis
     Dosage: UNK
     Route: 065
  4. ETORICOXIB [Suspect]
     Active Substance: ETORICOXIB
     Indication: Product used for unknown indication
     Route: 048
  5. ESOMEPRAZOLE [Suspect]
     Active Substance: ESOMEPRAZOLE
     Indication: Oesophagitis
     Dosage: UNK
     Route: 065
  6. ESOMEPRAZOLE [Suspect]
     Active Substance: ESOMEPRAZOLE
     Indication: Barrett^s oesophagus
     Dosage: UNK; ADDITIONAL INFO: ROUTE:ORAL
     Route: 048
  7. ESOMEPRAZOLE [Suspect]
     Active Substance: ESOMEPRAZOLE
     Indication: Oesophagitis
  8. DOMPERIDONE [Suspect]
     Active Substance: DOMPERIDONE
     Indication: Barrett^s oesophagus
     Route: 065
  9. DOMPERIDONE [Suspect]
     Active Substance: DOMPERIDONE
     Indication: Product used for unknown indication
  10. ARCOXIA [Suspect]
     Active Substance: ETORICOXIB
     Indication: Product used for unknown indication
     Dosage: UNK
     Route: 048
  11. COCODAMOL [Suspect]
     Active Substance: ACETAMINOPHEN\CODEINE PHOSPHATE
     Indication: Product used for unknown indication
     Dosage: CO-CODAMOL (CODEINE PHOSPHATE 30 MG/ PARACETAMOL 500 MG) TABLET, ADDITIONAL INFO: CO-CODAMOL (CODEIN
     Route: 048
  12. COCODAMOL [Suspect]
     Active Substance: ACETAMINOPHEN\CODEINE PHOSPHATE
     Dosage: (CODEINE PHOSPHATE 30 MG/ PARACETAMOL 500 MG), ADDITIONAL INFO: CO-CODAMOL (CODEINE PHOSPHATE 30 MG/
     Route: 065

REACTIONS (9)
  - Barrett^s oesophagus [Unknown]
  - Neck pain [Unknown]
  - Vitamin B12 deficiency [Unknown]
  - Eructation [Unknown]
  - Oropharyngeal discomfort [Unknown]
  - Abdominal distension [Unknown]
  - Dyspepsia [Unknown]
  - Regurgitation [Unknown]
  - Condition aggravated [Unknown]
